FAERS Safety Report 7746011-X (Version None)
Quarter: 2011Q3

REPORT INFORMATION
  Report Type: 
  Country: None (occurrence: None)
  Receive Date: 20110913
  Receipt Date: 20110727
  Transmission Date: 20111222
  Serious: Yes (Other)
  Sender: FDA-Public Use
  Company Number: US-ELI_LILLY_AND_COMPANY-US201108000245

PATIENT
  Age: 44 Year
  Sex: Female

DRUGS (8)
  1. TRAMADOL HCL [Concomitant]
     Dosage: UNK, PRN
  2. SEROQUEL [Concomitant]
     Dosage: 100 MG, UNKNOWN
  3. CYMBALTA [Suspect]
     Dosage: 90 MG, UNK
     Dates: start: 20090101, end: 20110701
  4. VITAMIN B-12 [Concomitant]
  5. KLONOPIN [Concomitant]
     Dosage: 0.5 MG, TID
  6. MULTI-VITAMIN [Concomitant]
  7. NEURONTIN                               /USA/ [Concomitant]
  8. VITAMIN B3 [Concomitant]
     Dosage: 50000 U, UNKNOWN

REACTIONS (1)
  - GRANULOMATOUS LIVER DISEASE [None]
